FAERS Safety Report 16963138 (Version 2)
Quarter: 2019Q4

REPORT INFORMATION
  Report Type: Report from Study
  Country: ES (occurrence: ES)
  Receive Date: 20191025
  Receipt Date: 20191028
  Transmission Date: 20200122
  Serious: Yes (Hospitalization)
  Sender: FDA-Public Use
  Company Number: ES-TEVA-2019-ES-1125837

PATIENT
  Age: 65 Year
  Sex: Male

DRUGS (1)
  1. SIMVASTATINA [Suspect]
     Active Substance: SIMVASTATIN
     Dosage: 50 MILLIGRAM DAILY; 50MGR TABLETS PER DAY
     Route: 048
     Dates: start: 20170510, end: 20170516

REACTIONS (2)
  - Hepatitis cholestatic [Recovered/Resolved]
  - Accidental overdose [Recovered/Resolved]

NARRATIVE: CASE EVENT DATE: 20170516
